FAERS Safety Report 4353419-1 (Version None)
Quarter: 2004Q2

REPORT INFORMATION
  Report Type: 
  Country: None (occurrence: None)
  Receive Date: 20040504
  Receipt Date: 20040504
  Transmission Date: 20050107
  Serious: Yes (Life-Threatening, Hospitalization)
  Sender: FDA-Public Use
  Company Number: None

PATIENT
  Age: 80 Year
  Weight: 68.9467 kg

DRUGS (5)
  1. ATENOLOL [Suspect]
     Indication: HYPERTENSION
     Dosage: 12.5 MG ORAL
     Route: 048
     Dates: start: 20040206, end: 20040315
  2. METFORMIN HCL [Concomitant]
  3. PAROXETINE HCL [Concomitant]
  4. ASA [Concomitant]
  5. LISINOPRIL [Concomitant]

REACTIONS (6)
  - BLOOD GLUCOSE INCREASED [None]
  - BRADYCARDIA [None]
  - COMA [None]
  - HYPERHIDROSIS [None]
  - HYPOTENSION [None]
  - PALLOR [None]
